FAERS Safety Report 5397147-2 (Version None)
Quarter: 2007Q3

REPORT INFORMATION
  Report Type: 
  Country: None (occurrence: None)
  Receive Date: 20070725
  Receipt Date: 20070718
  Transmission Date: 20080115
  Serious: Yes (Hospitalization)
  Sender: FDA-Public Use
  Company Number: DE-PFIZER INC-2007011851

PATIENT
  Sex: Male
  Weight: 73 kg

DRUGS (4)
  1. GENOTROPIN [Suspect]
     Indication: HYPOPITUITARISM
  2. HYDROCORTISON [Concomitant]
     Dates: start: 19870601
  3. TESTOSTERONE [Concomitant]
     Dates: start: 19970601
  4. LEVOTHYROXINE SODIUM [Concomitant]

REACTIONS (2)
  - CRANIOPHARYNGIOMA [None]
  - NEOPLASM RECURRENCE [None]
